FAERS Safety Report 5797434-X (Version None)
Quarter: 2008Q2

REPORT INFORMATION
  Report Type: 
  Country: None (occurrence: None)
  Receive Date: 20080630
  Receipt Date: 20080616
  Transmission Date: 20081010
  Serious: Yes (Hospitalization)
  Sender: FDA-Public Use
  Company Number: 2008SP001394

PATIENT
  Sex: Female
  Weight: 50 kg

DRUGS (5)
  1. BROVANA [Suspect]
     Indication: EMPHYSEMA
     Dosage: 15 UG/2ML; BID; INHALATION, 15 UG/2ML; TID; INHALATION
     Route: 055
     Dates: start: 20080101, end: 20080101
  2. BROVANA [Suspect]
     Indication: EMPHYSEMA
     Dosage: 15 UG/2ML; BID; INHALATION, 15 UG/2ML; TID; INHALATION
     Route: 055
     Dates: start: 20080101
  3. PULMICORT-100 [Concomitant]
  4. SPIRIVA [Concomitant]
  5. ALBUTEROL [Concomitant]

REACTIONS (4)
  - BACK PAIN [None]
  - FALL [None]
  - HIP FRACTURE [None]
  - PAIN IN EXTREMITY [None]
